FAERS Safety Report 9848497 (Version 1)
Quarter: 2013Q4

REPORT INFORMATION
  Report Type: Spontaneous
  Country: US (occurrence: None)
  Receive Date: 20131226
  Receipt Date: 20131226
  Transmission Date: 20140711
  Serious: Yes (Other)
  Sender: FDA-Public Use
  Company Number: PHEH2012US022598

PATIENT
  Age: 63 Year
  Sex: Female
  Weight: 65 kg

DRUGS (12)
  1. ARCAPTA (INDACATEROL) UNKNOWN [Suspect]
     Indication: CHRONIC OBSTRUCTIVE PULMONARY DISEASE
     Route: 055
  2. DULERA [Suspect]
  3. ALBUTEROL (SALBUTAMOL) [Concomitant]
  4. ASPIRIN (ACETYLSALICYLIC ACID) [Concomitant]
  5. SPIRIVA (TIOTROPIUM BROMIDE) [Concomitant]
  6. VALIUM (DIAZEPAM) [Concomitant]
  7. FLEXERIL (CYCLOBENZAPRINE HYDROCHLORIDE) [Concomitant]
  8. AMBIEN (ZOLPIDEM TARTRATE) [Concomitant]
  9. LANSOPRIL (LANSOPRAZOLE) [Concomitant]
  10. EFFEXOR (VENLAFAXINE HYDROCHLORIDE) [Concomitant]
  11. ATENOLOL (ATENOLOL) [Concomitant]
  12. VITAMIN D (ERGOCALCIFEROL) [Concomitant]

REACTIONS (2)
  - Candida infection [None]
  - Dysphagia [None]
